FAERS Safety Report 9283724 (Version 1)
Quarter: 2013Q2

REPORT INFORMATION
  Report Type: Spontaneous
  Country: IL (occurrence: IL)
  Receive Date: 20130510
  Receipt Date: 20130510
  Transmission Date: 20140414
  Serious: Yes (Other)
  Sender: FDA-Public Use
  Company Number: IL-GLAXOSMITHKLINE-B0890158A

PATIENT
  Sex: Male

DRUGS (4)
  1. REQUIP-MODUTAB [Suspect]
     Indication: PARKINSONISM
     Route: 065
  2. REQUIP-MODUTAB [Suspect]
     Indication: PARKINSONISM
     Route: 065
  3. SIFROL [Suspect]
     Indication: PRODUCT USED FOR UNKNOWN INDICATION
     Route: 065
  4. AZILECT [Concomitant]

REACTIONS (1)
  - Tongue paralysis [Unknown]
